FAERS Safety Report 10413974 (Version 1)
Quarter: 2014Q3

REPORT INFORMATION
  Report Type: Spontaneous
  Country: IN (occurrence: None)
  Receive Date: 20140825
  Receipt Date: 20140825
  Transmission Date: 20150326
  Serious: Yes (Hospitalization)
  Sender: FDA-Public Use
  Company Number: AUR-APL-2014-08999

PATIENT
  Age: 18 Year
  Sex: Female

DRUGS (2)
  1. KARDAM (AMLODIPINE) [Suspect]
     Active Substance: AMLODIPINE BESYLATE
     Indication: PRODUCT USED FOR UNKNOWN INDICATION
     Dosage: 17 TABLETS OF FIXED DOSE COMBINATION
     Route: 048
  2. ATENOLOL. [Suspect]
     Active Substance: ATENOLOL
     Indication: PRODUCT USED FOR UNKNOWN INDICATION
     Dosage: 17 TABLETS OF FIXED DOSE COMBINATION
     Route: 048

REACTIONS (9)
  - Hypoxia [None]
  - Sinus tachycardia [None]
  - Hypotension [None]
  - Hypopnoea [None]
  - Acute respiratory distress syndrome [None]
  - Overdose [None]
  - Renal failure acute [None]
  - Anxiety [None]
  - Metabolic acidosis [None]
